FAERS Safety Report 15799782 (Version 1)
Quarter: 2019Q1

REPORT INFORMATION
  Report Type: Report from Study
  Country: US (occurrence: US)
  Receive Date: 20190108
  Receipt Date: 20190108
  Transmission Date: 20190417
  Serious: Yes (Hospitalization, Other)
  Sender: FDA-Public Use
  Company Number: US-GILEAD-2019-0382921

PATIENT
  Age: 22 Year
  Sex: Female

DRUGS (3)
  1. AZTREONAM LYSINE [Suspect]
     Active Substance: AZTREONAM LYSINE
     Indication: CYSTIC FIBROSIS
     Dosage: 75 MG
     Route: 055
  2. IVACAFTOR [Concomitant]
     Active Substance: IVACAFTOR
  3. TEZACAFTOR [Concomitant]
     Active Substance: TEZACAFTOR

REACTIONS (1)
  - Infection [Not Recovered/Not Resolved]
